FAERS Safety Report 8524624-5 (Version None)
Quarter: 2012Q3

REPORT INFORMATION
  Report Type: 
  Country: None (occurrence: None)
  Receive Date: 20120720
  Receipt Date: 20120716
  Transmission Date: 20120928
  Serious: Yes (Life-Threatening, Hospitalization, Other)
  Sender: FDA-Public Use
  Company Number: US-ASTRAZENECA-2012SE49127

PATIENT
  Age: 37 Year
  Sex: Female
  Weight: 105 kg

DRUGS (4)
  1. KLONOPIN [Suspect]
     Indication: GENERALISED ANXIETY DISORDER
     Route: 065
     Dates: start: 20100101
  2. XANAX [Suspect]
     Indication: ANXIETY DISORDER
     Route: 048
     Dates: start: 20090101
  3. XANAX [Suspect]
     Route: 048
     Dates: start: 20120401
  4. SEROQUEL [Suspect]
     Indication: GENERALISED ANXIETY DISORDER
     Route: 048
     Dates: start: 20100101

REACTIONS (5)
  - OFF LABEL USE [None]
  - ANAPHYLACTIC SHOCK [None]
  - GASTROINTESTINAL DISORDER [None]
  - DRUG INEFFECTIVE [None]
  - MOBILITY DECREASED [None]
